FAERS Safety Report 7497999-6 (Version None)
Quarter: 2011Q2

REPORT INFORMATION
  Report Type: 
  Country: None (occurrence: None)
  Receive Date: 20110524
  Receipt Date: 20110512
  Transmission Date: 20111010
  Serious: No
  Sender: FDA-Public Use
  Company Number: US-BIOGENIDEC-2011BI011806

PATIENT
  Sex: Female

DRUGS (2)
  1. TYSABRI [Suspect]
     Indication: MULTIPLE SCLEROSIS
     Route: 042
     Dates: start: 20090205, end: 20100701
  2. AVONEX [Concomitant]
     Indication: MULTIPLE SCLEROSIS
     Route: 030
     Dates: start: 19990101

REACTIONS (8)
  - MUSCULOSKELETAL DISORDER [None]
  - TREMOR [None]
  - FATIGUE [None]
  - DYSSTASIA [None]
  - MOBILITY DECREASED [None]
  - MEMORY IMPAIRMENT [None]
  - ASTHENIA [None]
  - APHASIA [None]
